FAERS Safety Report 8593249-8 (Version None)
Quarter: 2012Q3

REPORT INFORMATION
  Report Type: 
  Country: None (occurrence: None)
  Receive Date: 20120814
  Receipt Date: 20070226
  Transmission Date: 20120928
  Serious: Yes (Death, Other)
  Sender: FDA-Public Use
  Company Number: CO-PFIZER INC-2012192878

PATIENT
  Age: 73 Year
  Sex: Male

DRUGS (6)
  1. LIPITOR [Suspect]
     Indication: DYSLIPIDAEMIA
     Dosage: 10 MG, 1X/DAY
  2. ACCURETIC [Suspect]
     Indication: HYPERTENSION
     Dosage: 20/12.5 MG, 1X/DAY
  3. VERAPAMIL HYDROCHLORIDE [Concomitant]
     Dosage: 120 MG, 1X/DAY
  4. FUROSEMIDE [Concomitant]
     Dosage: 40 MG, 1X/DAY
  5. VERAPAMIL HYDROCHLORIDE [Concomitant]
     Dosage: 120 MG, 2X/DAY
  6. ACETYLSALICYLIC ACID [Concomitant]
     Dosage: 100 MG, 1X/DAY

REACTIONS (4)
  - DYSPNOEA [None]
  - SUDDEN CARDIAC DEATH [None]
  - HYPERTENSIVE EMERGENCY [None]
  - FATIGUE [None]
